FAERS Safety Report 22050763 (Version 1)
Quarter: 2023Q1

REPORT INFORMATION
  Report Type: Spontaneous
  Country: FR (occurrence: FR)
  Receive Date: 20230301
  Receipt Date: 20230301
  Transmission Date: 20230417
  Serious: Yes (Hospitalization)
  Sender: FDA-Public Use
  Company Number: None

PATIENT
  Age: 85 Year
  Sex: Male
  Weight: 68 kg

DRUGS (8)
  1. METHOTREXATE SODIUM [Suspect]
     Active Substance: METHOTREXATE SODIUM
     Indication: Lymphoma
     Dosage: 3650 MG, SINGLE
     Route: 042
     Dates: start: 20180320, end: 20180320
  2. VINCRISTINE SULFATE [Suspect]
     Active Substance: VINCRISTINE SULFATE
     Indication: Lymphoma
     Dosage: 2 MG, SINGLE
     Route: 042
     Dates: start: 20180320, end: 20180320
  3. AMLODIPINE [Concomitant]
     Active Substance: AMLODIPINE BESYLATE
  4. PROCARBAZINE [Concomitant]
     Active Substance: PROCARBAZINE
  5. LORMETAZEPAM [Concomitant]
     Active Substance: LORMETAZEPAM
  6. RITUXIMAB [Concomitant]
     Active Substance: RITUXIMAB
  7. VALACYCLOVIR HYDROCHLORIDE [Concomitant]
     Active Substance: VALACYCLOVIR HYDROCHLORIDE
  8. CYAMEMAZINE [Concomitant]
     Active Substance: CYAMEMAZINE

REACTIONS (2)
  - Acute kidney injury [Recovered/Resolved]
  - Hepatic cytolysis [Recovered/Resolved]

NARRATIVE: CASE EVENT DATE: 20180321
